FAERS Safety Report 6002272-9 (Version None)
Quarter: 2008Q4

REPORT INFORMATION
  Report Type: 
  Country: None (occurrence: None)
  Receive Date: 20081215
  Receipt Date: 20071119
  Transmission Date: 20090506
  Serious: No
  Sender: FDA-Public Use
  Company Number: US-AMGEN-KDL253237

PATIENT
  Sex: Male

DRUGS (2)
  1. ENBREL [Suspect]
     Indication: RHEUMATOID ARTHRITIS
     Route: 058
     Dates: start: 20051231
  2. ENBREL [Suspect]
     Indication: PSORIASIS

REACTIONS (2)
  - RHEUMATOID ARTHRITIS [None]
  - THERAPEUTIC PRODUCT INEFFECTIVE [None]
